FAERS Safety Report 9538676 (Version 2)
Quarter: 2014Q1

REPORT INFORMATION
  Report Type: Spontaneous
  Country: US (occurrence: None)
  Receive Date: 20130917
  Receipt Date: 20140306
  Transmission Date: 20141002
  Serious: Yes (Hospitalization)
  Sender: FDA-Public Use
  Company Number: 2013-US-000399

PATIENT
  Age: 57 Year
  Sex: Female

DRUGS (2)
  1. XYREM (SODIUM OXYBATE) ORAL SOLUTION, 500MG/ML [Suspect]
     Indication: INSOMNIA
     Dates: start: 20110804
  2. CENTRAL NERVOUS SYSTEM DEPRESSANT DRUGS, UNSPECIFIED [Concomitant]

REACTIONS (1)
  - Surgery [None]
